FAERS Safety Report 10745228 (Version 1)
Quarter: 2015Q1

REPORT INFORMATION
  Report Type: Spontaneous
  Country: US (occurrence: US)
  Receive Date: 20150128
  Receipt Date: 20150128
  Transmission Date: 20150721
  Serious: No
  Sender: FDA-Public Use
  Company Number: US-GLAXOSMITHKLINE-A1064112A

PATIENT

DRUGS (5)
  1. WELLBUTRIN [Suspect]
     Active Substance: BUPROPION HYDROCHLORIDE
     Indication: SERUM SEROTONIN DECREASED
     Route: 048
     Dates: start: 1996
  2. WELLBUTRIN [Suspect]
     Active Substance: BUPROPION HYDROCHLORIDE
     Indication: DISORIENTATION
  3. WELLBUTRIN [Suspect]
     Active Substance: BUPROPION HYDROCHLORIDE
     Indication: DISORIENTATION
  4. ATIVAN [Suspect]
     Active Substance: LORAZEPAM
     Indication: FEELING OF RELAXATION
     Dates: start: 1996
  5. WELLBUTRIN [Suspect]
     Active Substance: BUPROPION HYDROCHLORIDE
     Indication: SERUM SEROTONIN DECREASED
     Route: 048

REACTIONS (5)
  - Feeling abnormal [Unknown]
  - Drug ineffective [Unknown]
  - Hypertension [Unknown]
  - Disorientation [Recovered/Resolved]
  - Nervousness [Unknown]
